FAERS Safety Report 10345638 (Version 3)
Quarter: 2019Q1

REPORT INFORMATION
  Report Type: Spontaneous
  Country: US (occurrence: US)
  Receive Date: 20140728
  Receipt Date: 20190308
  Transmission Date: 20190417
  Serious: Yes (Hospitalization, Other)
  Sender: FDA-Public Use
  Company Number: US-009507513-1407USA010446

PATIENT
  Age: 52 Year
  Sex: Male
  Weight: 90.25 kg

DRUGS (7)
  1. ASPIRIN. [Concomitant]
     Active Substance: ASPIRIN
  2. INSULIN [Concomitant]
     Active Substance: INSULIN NOS
  3. MAXALT [Suspect]
     Active Substance: RIZATRIPTAN BENZOATE
     Indication: MIGRAINE
     Dosage: UNSPECIFIED DOSE, AS NEEDED, NOT TO EXCEED 2 TABLETS WITHIN 24 HOURS
     Route: 048
     Dates: end: 20140724
  4. TAMSULOSIN HYDROCHLORIDE. [Concomitant]
     Active Substance: TAMSULOSIN HYDROCHLORIDE
  5. NIACIN. [Concomitant]
     Active Substance: NIACIN
  6. OMEPRAZOLE. [Concomitant]
     Active Substance: OMEPRAZOLE
  7. PROPRANOLOL HYDROCHLORIDE. [Concomitant]
     Active Substance: PROPRANOLOL HYDROCHLORIDE

REACTIONS (10)
  - Gastrointestinal bacterial overgrowth [Unknown]
  - Ileectomy [Recovered/Resolved]
  - Drug hypersensitivity [Unknown]
  - Mesenteric vascular insufficiency [Unknown]
  - Infarction [Recovered/Resolved]
  - Productive cough [Unknown]
  - Colitis ischaemic [Unknown]
  - Respiratory disorder [Unknown]
  - Colectomy [Recovered/Resolved]
  - Appendicectomy [Recovered/Resolved]

NARRATIVE: CASE EVENT DATE: 201406
